FAERS Safety Report 8609013-7 (Version None)
Quarter: 2012Q3

REPORT INFORMATION
  Report Type: 
  Country: None (occurrence: None)
  Receive Date: 20120821
  Receipt Date: 20120816
  Transmission Date: 20120928
  Serious: Yes (Other)
  Sender: FDA-Public Use
  Company Number: LV-GLAXOSMITHKLINE-B0807896A

PATIENT
  Sex: Male
  Weight: 75 kg

DRUGS (4)
  1. CLONAZEPAM [Concomitant]
     Indication: EPILEPSY
     Dosage: 2MG PER DAY
     Route: 048
  2. POTIGA [Suspect]
     Indication: EPILEPSY
     Dosage: 100MG THREE TIMES PER DAY
     Route: 048
     Dates: start: 20120322, end: 20120416
  3. LAMICTAL [Concomitant]
     Indication: EPILEPSY
     Dosage: 150MG PER DAY
     Route: 048
  4. DEPAKENE [Concomitant]
     Indication: EPILEPSY
     Dosage: 500MG PER DAY
     Route: 048

REACTIONS (7)
  - DISORIENTATION [None]
  - SOMNOLENCE [None]
  - DIZZINESS [None]
  - TREMOR [None]
  - LOSS OF CONSCIOUSNESS [None]
  - CHOKING SENSATION [None]
  - ANXIETY [None]
